FAERS Safety Report 9697435 (Version 1)
Quarter: 2013Q4

REPORT INFORMATION
  Report Type: Spontaneous
  Country: US (occurrence: None)
  Receive Date: 20131119
  Receipt Date: 20131119
  Transmission Date: 20140711
  Serious: No
  Sender: FDA-Public Use
  Company Number: None

PATIENT
  Age: 32 Year
  Sex: Male
  Weight: 74.84 kg

DRUGS (1)
  1. ZUBSOLV [Suspect]
     Indication: DRUG DEPENDENCE
     Dosage: 1 PILL TWICE DAILY TAKEN UNDER THE TONGUE
     Route: 060
     Dates: start: 20131116, end: 20131118

REACTIONS (7)
  - Headache [None]
  - Tremor [None]
  - Nausea [None]
  - Thinking abnormal [None]
  - Dizziness [None]
  - Hypoaesthesia [None]
  - Diarrhoea [None]
